FAERS Safety Report 10565185 (Version 1)
Quarter: 2014Q4

REPORT INFORMATION
  Report Type: Spontaneous
  Country: US (occurrence: None)
  Receive Date: 20141104
  Receipt Date: 20141104
  Transmission Date: 20150529
  Serious: No
  Sender: FDA-Public Use
  Company Number: None

PATIENT
  Age: 74 Year
  Sex: Male
  Weight: 118 kg

DRUGS (2)
  1. QUETIAPINE [Concomitant]
     Active Substance: QUETIAPINE
  2. SERTRALINE [Suspect]
     Active Substance: SERTRALINE HYDROCHLORIDE
     Indication: DEPRESSION
     Dosage: 50 MG/ 1 PILL QD ORAL
     Route: 048
     Dates: start: 20141007, end: 20141030

REACTIONS (3)
  - Cholestasis [None]
  - Liver injury [None]
  - Cholelithiasis [None]

NARRATIVE: CASE EVENT DATE: 20141031
